FAERS Safety Report 9849631 (Version 3)
Quarter: 2014Q4

REPORT INFORMATION
  Report Type: Spontaneous
  Country: US (occurrence: US)
  Receive Date: 20140128
  Receipt Date: 20141215
  Transmission Date: 20150529
  Serious: No
  Sender: FDA-Public Use
  Company Number: US-PFIZER INC-2014024677

PATIENT
  Sex: Female
  Weight: 72.56 kg

DRUGS (9)
  1. PRILOSEC [Concomitant]
     Active Substance: OMEPRAZOLE MAGNESIUM
     Dosage: 40 MG, UNK
  2. CRESTOR [Concomitant]
     Active Substance: ROSUVASTATIN CALCIUM
     Dosage: 20 MG, UNK
  3. MULTIVITAMINS [Concomitant]
     Active Substance: VITAMINS
  4. CELEBREX [Suspect]
     Active Substance: CELECOXIB
     Indication: OSTEOPOROSIS
  5. OGEN [Concomitant]
     Active Substance: ESTROPIPATE
     Dosage: 0.75 MG, UNK
  6. LISINOPRIL. [Concomitant]
     Active Substance: LISINOPRIL
     Dosage: 20 MG, UNK
  7. MYLANTA [Concomitant]
     Active Substance: ALUMINUM HYDROXIDE\MAGNESIUM HYDROXIDE\SIMETHICONE
  8. ASPIRIN. [Concomitant]
     Active Substance: ASPIRIN
     Dosage: 81 MG, UNK
  9. CELEBREX [Suspect]
     Active Substance: CELECOXIB
     Indication: SCOLIOSIS
     Dosage: DAILY
     Route: 048

REACTIONS (3)
  - Product use issue [Unknown]
  - Pain [Unknown]
  - Drug hypersensitivity [Unknown]
